FAERS Safety Report 13775901 (Version 1)
Quarter: 2017Q3

REPORT INFORMATION
  Report Type: Spontaneous
  Country: US (occurrence: US)
  Receive Date: 20170720
  Receipt Date: 20170720
  Transmission Date: 20171127
  Serious: Yes (Hospitalization)
  Sender: FDA-Public Use
  Company Number: US-ABBVIE-17K-163-2042484-00

PATIENT
  Sex: Male

DRUGS (2)
  1. HUMIRA [Suspect]
     Active Substance: ADALIMUMAB
     Indication: CROHN^S DISEASE
     Route: 058
  2. 6 MP [Concomitant]
     Active Substance: MERCAPTOPURINE
     Indication: PRODUCT USED FOR UNKNOWN INDICATION

REACTIONS (4)
  - Hypersensitivity [Unknown]
  - Sinusitis [Unknown]
  - Cough [Not Recovered/Not Resolved]
  - Small intestine ulcer [Unknown]
